FAERS Safety Report 5504569-5 (Version None)
Quarter: 2007Q4

REPORT INFORMATION
  Report Type: 
  Country: None (occurrence: None)
  Receive Date: 20071031
  Receipt Date: 20061019
  Transmission Date: 20080405
  Serious: Yes (Other)
  Sender: FDA-Public Use
  Company Number: 2006VX002018

PATIENT
  Age: 34 Year
  Sex: Female

DRUGS (4)
  1. LIBRAX [Suspect]
     Dosage: TID PO
     Route: 048
  2. LIBRIUM [Suspect]
     Dosage: 10 MG TID
  3. FLUPHENAZINE HCL [Suspect]
     Dosage: .5 MG TID
  4. PROCHLORPERAZINE [Suspect]
     Dosage: 5 MG TID

REACTIONS (5)
  - ALCOHOL PROBLEM [None]
  - BILIARY CIRRHOSIS [None]
  - CHOLELITHIASIS [None]
  - HEPATITIS VIRAL [None]
  - JAUNDICE [None]
